FAERS Safety Report 10606075 (Version 2)
Quarter: 2015Q1

REPORT INFORMATION
  Report Type: Report from Study
  Country: DE (occurrence: FR)
  Receive Date: 20141125
  Receipt Date: 20150213
  Transmission Date: 20150720
  Serious: Yes (Death, Hospitalization)
  Sender: FDA-Public Use
  Company Number: FR-ACTELION-A-CH2014-108259

PATIENT
  Age: 77 Year
  Sex: Female

DRUGS (1)
  1. VENTAVIS [Suspect]
     Active Substance: ILOPROST
     Indication: PULMONARY ARTERIAL HYPERTENSION
     Route: 055

REACTIONS (3)
  - Staphylococcal sepsis [Fatal]
  - Lung neoplasm [Unknown]
  - General physical health deterioration [Unknown]

NARRATIVE: CASE EVENT DATE: 200808
